FAERS Safety Report 5446988-1 (Version None)
Quarter: 2007Q3

REPORT INFORMATION
  Report Type: 
  Country: None (occurrence: None)
  Receive Date: 20070803
  Receipt Date: 20070405
  Transmission Date: 20080115
  Serious: Yes (Hospitalization)
  Sender: FDA-Public Use
  Company Number: US-JNJFOC-20070401571

PATIENT
  Age: 12 Year
  Sex: Male

DRUGS (1)
  1. ACETAMINOPHEN [Suspect]
     Indication: DRUG USE FOR UNKNOWN INDICATION
     Dosage: BETWEEN 80-120 TOTAL;

REACTIONS (2)
  - HEPATOCELLULAR DAMAGE [None]
  - INTENTIONAL OVERDOSE [None]
